FAERS Safety Report 4611726-9 (Version None)
Quarter: 2005Q2

REPORT INFORMATION
  Report Type: 
  Country: None (occurrence: None)
  Receive Date: 20050311
  Receipt Date: 20041118
  Transmission Date: 20051028
  Serious: No
  Sender: FDA-Public Use
  Company Number: 2004-BP-10297BP

PATIENT
  Age: 67 Year
  Sex: Female

DRUGS (9)
  1. SPIRIVA [Suspect]
     Indication: CHRONIC OBSTRUCTIVE PULMONARY DISEASE
     Dosage: 18 MCG (18 MCG), IH
     Route: 055
     Dates: start: 20041010
  2. GLYBURIDE [Concomitant]
  3. LABETALOL HCL [Concomitant]
  4. LISINOPRIL [Concomitant]
  5. LIPITOR [Concomitant]
  6. DILTIAZEM [Concomitant]
  7. ARIMIDEX [Concomitant]
  8. ALBUTEROL [Concomitant]
  9. AVANDIA [Concomitant]

REACTIONS (3)
  - DYSPNOEA [None]
  - EYE DISORDER [None]
  - MYALGIA [None]
